FAERS Safety Report 4743703-1 (Version None)
Quarter: 2005Q3

REPORT INFORMATION
  Report Type: 
  Country: None (occurrence: None)
  Receive Date: 20050809
  Receipt Date: 20050727
  Transmission Date: 20060218
  Serious: Yes (Hospitalization)
  Sender: FDA-Public Use
  Company Number: HQWYE577227JUL05

PATIENT
  Age: 85 Year
  Sex: Female

DRUGS (4)
  1. AVLOCARDYL LP (PROPRANOLOL HYDROCHLORIDE, CAPSULE, EXTENDED RELEASE) [Suspect]
     Dosage: 160 MG 1X PER 1 DAY ORAL
     Route: 048
     Dates: start: 20030115, end: 20050603
  2. KETOPROFEN [Suspect]
     Dosage: 2.5% TOPICAL
     Route: 061
     Dates: start: 20050115, end: 20050603
  3. MODOPAR (BENSERAZIDE HYDROCHLORIDE/LEVODOPA,) [Suspect]
     Dosage: ORAL
     Route: 048
     Dates: start: 20040115, end: 20050603
  4. TRIVASTAL (PIRIBEDIL,) [Suspect]
     Dosage: ORAL
     Route: 048
     Dates: start: 20040115, end: 20050603

REACTIONS (2)
  - BLOOD IMMUNOGLOBULIN E INCREASED [None]
  - PHOTOSENSITIVITY REACTION [None]
